FAERS Safety Report 6235841-1 (Version None)
Quarter: 2009Q2

REPORT INFORMATION
  Report Type: 
  Country: None (occurrence: None)
  Receive Date: 20090617
  Receipt Date: 20090617
  Transmission Date: 20091009
  Serious: No
  Sender: FDA-Public Use
  Company Number: None

PATIENT
  Age: 28 Year
  Sex: Female
  Weight: 65.7716 kg

DRUGS (2)
  1. ZICAM COUGH SPRAY ZICAM [Suspect]
     Indication: COUGH
     Dosage: 5 SPRAYS EVERY NIGHT PO
     Route: 048
     Dates: start: 20090601, end: 20090613
  2. ZICAM COUGH SPRAY ZICAM [Suspect]
     Indication: NASOPHARYNGITIS
     Dosage: 5 SPRAYS EVERY NIGHT PO
     Route: 048
     Dates: start: 20090601, end: 20090613

REACTIONS (1)
  - ANOSMIA [None]
